FAERS Safety Report 7284579-0 (Version None)
Quarter: 2011Q1

REPORT INFORMATION
  Report Type: 
  Country: None (occurrence: None)
  Receive Date: 20110210
  Receipt Date: 20110201
  Transmission Date: 20110831
  Serious: Yes (Hospitalization)
  Sender: FDA-Public Use
  Company Number: US-BIOGENIDEC-2010BI024206

PATIENT
  Age: 53 Year
  Sex: Female

DRUGS (2)
  1. AVONEX [Suspect]
     Indication: MULTIPLE SCLEROSIS
     Route: 030
     Dates: start: 20091030, end: 20100401
  2. AVONEX [Suspect]
     Route: 030
     Dates: start: 20110110

REACTIONS (6)
  - CHOLELITHIASIS [None]
  - MUSCLE ATROPHY [None]
  - GAIT DISTURBANCE [None]
  - ABDOMINAL INFECTION [None]
  - PANCREATITIS [None]
  - BILE DUCT OBSTRUCTION [None]
